FAERS Safety Report 24149886 (Version 2)
Quarter: 2024Q3

REPORT INFORMATION
  Report Type: Report from Study
  Country: CO (occurrence: CO)
  Receive Date: 20240730
  Receipt Date: 20240829
  Transmission Date: 20241017
  Serious: Yes (Hospitalization)
  Sender: JOHNSON AND JOHNSON
  Company Number: CO-JNJFOC-20240765368

PATIENT
  Age: 40 Year
  Sex: Female
  Weight: 69 kg

DRUGS (2)
  1. SIMPONI [Suspect]
     Active Substance: GOLIMUMAB
     Indication: Ankylosing spondylitis
     Dosage: LAST DRUG APPLICATION: 14-JUN-2024
     Route: 058
     Dates: start: 20230222
  2. SIMPONI [Suspect]
     Active Substance: GOLIMUMAB
     Dosage: LAST DRUG APPLICATION: 14-JUN-2024
     Route: 058

REACTIONS (2)
  - Kidney infection [Recovered/Resolved]
  - Pelvic inflammatory disease [Recovered/Resolved]

NARRATIVE: CASE EVENT DATE: 20240709
